FAERS Safety Report 6012940-0 (Version None)
Quarter: 2008Q4

REPORT INFORMATION
  Report Type: 
  Country: None (occurrence: None)
  Receive Date: 20081219
  Receipt Date: 20081205
  Transmission Date: 20090506
  Serious: Yes (Death)
  Sender: FDA-Public Use
  Company Number: US-SANOFI-SYNTHELABO-A03200804919

PATIENT
  Age: 67 Year
  Sex: Female

DRUGS (5)
  1. PREDNISONE TAB [Concomitant]
     Indication: DRUG USE FOR UNKNOWN INDICATION
     Dosage: UNK
     Route: 065
  2. ANGIOMAX [Suspect]
     Indication: PERCUTANEOUS CORONARY INTERVENTION
     Dosage: 0.75 MG/KG IV BOLUS FOLLOWED BY A 1.75 MG/KG/HOUR INFUSION
     Route: 042
     Dates: start: 20080101
  3. ANGIOMAX [Suspect]
     Indication: STENT PLACEMENT
     Dosage: 0.75 MG/KG IV BOLUS FOLLOWED BY A 1.75 MG/KG/HOUR INFUSION
     Route: 042
     Dates: start: 20080101
  4. ASPIRIN [Suspect]
     Indication: DRUG USE FOR UNKNOWN INDICATION
     Dosage: UNK
     Route: 065
     Dates: start: 20080101
  5. PLAVIX [Suspect]
     Indication: DRUG USE FOR UNKNOWN INDICATION
     Dosage: UNK
     Route: 048
     Dates: start: 20080101

REACTIONS (4)
  - DISSEMINATED INTRAVASCULAR COAGULATION [None]
  - HAEMORRHAGE [None]
  - RETROPERITONEAL HAEMORRHAGE [None]
  - VESSEL PUNCTURE SITE HAEMORRHAGE [None]
